FAERS Safety Report 14158472 (Version 4)
Quarter: 2020Q1

REPORT INFORMATION
  Report Type: Spontaneous
  Country: JP (occurrence: JP)
  Receive Date: 20171106
  Receipt Date: 20200318
  Transmission Date: 20200409
  Serious: Yes (Hospitalization, Other)
  Sender: FDA-Public Use
  Company Number: JP-009507513-1710JPN001358J

PATIENT
  Age: 52 Year
  Sex: Male

DRUGS (6)
  1. LORAMET [Concomitant]
     Active Substance: LORMETAZEPAM
     Indication: INSOMNIA
     Dosage: UNK
     Route: 048
     Dates: end: 20170806
  2. CYMBALTA [Concomitant]
     Active Substance: DULOXETINE HYDROCHLORIDE
     Indication: DEPRESSION
     Dosage: 30 MG, BID
     Route: 048
     Dates: start: 20120114
  3. MICARDIS [Concomitant]
     Active Substance: TELMISARTAN
     Indication: HYPERTENSION
     Dosage: 40 MG, QD
     Route: 048
  4. BELSOMRA [Suspect]
     Active Substance: SUVOREXANT
     Indication: INSOMNIA
     Dosage: 20 MG, QD
     Route: 048
     Dates: start: 20170807, end: 20170810
  5. BROTIZOLAM [Concomitant]
     Active Substance: BROTIZOLAM
     Indication: INSOMNIA
     Dosage: 0.25 MG, QD
     Route: 048
  6. ETHYL LOFLAZEPATE [Suspect]
     Active Substance: ETHYL LOFLAZEPATE
     Indication: INSOMNIA
     Dosage: 1 MG, QD, NIGHT
     Route: 048

REACTIONS (6)
  - Loss of consciousness [Recovered/Resolved]
  - Contusion [Recovered/Resolved]
  - Subarachnoid haemorrhage [Recovered/Resolved]
  - Alcohol poisoning [Unknown]
  - Subdural haemorrhage [Recovered/Resolved]
  - Facial bones fracture [Recovered/Resolved]

NARRATIVE: CASE EVENT DATE: 20170811
